FAERS Safety Report 4502469-0 (Version None)
Quarter: 2004Q4

REPORT INFORMATION
  Report Type: 
  Country: None (occurrence: None)
  Receive Date: 20041112
  Receipt Date: 20041027
  Transmission Date: 20050328
  Serious: Yes (Hospitalization)
  Sender: FDA-Public Use
  Company Number: J200404479

PATIENT
  Age: 79 Year
  Sex: Female

DRUGS (1)
  1. (MYSLEE) ZOLPIDEM TABLET 10MG [Suspect]
     Dosage: 10MG PO
     Route: 048
     Dates: start: 20041026, end: 20041026

REACTIONS (4)
  - CEREBRAL INFARCTION [None]
  - DELIRIUM [None]
  - LOSS OF CONSCIOUSNESS [None]
  - TONGUE PARALYSIS [None]
